FAERS Safety Report 8949880 (Version 1)
Quarter: 2012Q4

REPORT INFORMATION
  Report Type: 
  Country: CH (occurrence: CH)
  Receive Date: 20121206
  Receipt Date: 20121206
  Transmission Date: 20130627
  Serious: Yes (Hospitalization, Other)
  Sender: FDA-Public Use
  Company Number: CH-ELI_LILLY_AND_COMPANY-CH201211009514

PATIENT
  Age: 70 None
  Sex: Male
  Weight: 98 kg

DRUGS (4)
  1. EFIENT [Suspect]
     Indication: ACUTE CORONARY SYNDROME
     Dosage: 60 mg, single loading dose
     Route: 048
     Dates: start: 20120122, end: 20120122
  2. EFIENT [Suspect]
     Dosage: 10 mg, qd
     Route: 048
     Dates: start: 20120123
  3. ASPIRIN [Concomitant]
     Dosage: 300-500 loading dose
  4. ASPIRIN [Concomitant]
     Dosage: 100 mg, qd

REACTIONS (2)
  - Duodenal ulcer [Recovered/Resolved]
  - Gastrointestinal haemorrhage [Unknown]
